FAERS Safety Report 9457206 (Version 3)
Quarter: 2013Q4

REPORT INFORMATION
  Report Type: Report from Study
  Country: US (occurrence: US)
  Receive Date: 20130814
  Receipt Date: 20131106
  Transmission Date: 20140711
  Serious: Yes (Hospitalization)
  Sender: FDA-Public Use
  Company Number: US-ROCHE-1231392

PATIENT
  Age: 65 Year
  Sex: Female
  Weight: 95.34 kg

DRUGS (6)
  1. HERCEPTIN [Suspect]
     Indication: BREAST CANCER
     Route: 042
     Dates: start: 20130102, end: 20130327
  2. HERCEPTIN [Suspect]
     Route: 042
     Dates: start: 20130417, end: 20130731
  3. HERCEPTIN [Suspect]
     Dosage: SHE RECEIVED LAST DOSE OF TRASTUZUMAB: 09/OCT/2013,
     Route: 042
     Dates: start: 20130807
  4. HYDROCODONE HCL [Concomitant]
     Indication: PAIN
     Route: 048
  5. BENADRYL (UNITED STATES) [Concomitant]
  6. LEVOXYL [Concomitant]
     Indication: THYROID DISORDER
     Dosage: ON EMPTY STOMACH
     Route: 048
     Dates: start: 2005

REACTIONS (16)
  - Breast reconstruction [Recovering/Resolving]
  - Pain in extremity [Not Recovered/Not Resolved]
  - Hypoaesthesia [Unknown]
  - Paraesthesia [Not Recovered/Not Resolved]
  - Nausea [Recovering/Resolving]
  - Abdominal pain upper [Not Recovered/Not Resolved]
  - Pruritus [Not Recovered/Not Resolved]
  - Urticaria [Not Recovered/Not Resolved]
  - Memory impairment [Not Recovered/Not Resolved]
  - Eye swelling [Not Recovered/Not Resolved]
  - Swollen tongue [Not Recovered/Not Resolved]
  - Fall [Unknown]
  - Ejection fraction decreased [Not Recovered/Not Resolved]
  - Head injury [Not Recovered/Not Resolved]
  - Limb injury [Not Recovered/Not Resolved]
  - Contusion [Unknown]
